FAERS Safety Report 5889634-5 (Version None)
Quarter: 2008Q3

REPORT INFORMATION
  Report Type: 
  Country: None (occurrence: None)
  Receive Date: 20080919
  Receipt Date: 20080915
  Transmission Date: 20090109
  Serious: Yes (Hospitalization)
  Sender: FDA-Public Use
  Company Number: B0537674A

PATIENT
  Age: 72 Year
  Sex: Male

DRUGS (10)
  1. LANOXIN [Suspect]
     Indication: CARDIAC DISORDER
     Dosage: .125MG PER DAY
     Route: 048
     Dates: start: 20080715, end: 20080810
  2. FUROSEMIDE [Concomitant]
  3. THEOPHYLLINE [Concomitant]
  4. ASPIRIN [Concomitant]
  5. PANTOPRAZOLE SODIUM [Concomitant]
  6. ENALAPRIL MALEATE [Concomitant]
  7. NITROGLYCERIN [Concomitant]
  8. SERTRALINE [Concomitant]
  9. BREVA [Concomitant]
     Route: 055
  10. FLUNISOLIDE [Concomitant]
     Route: 055

REACTIONS (7)
  - ATRIOVENTRICULAR BLOCK COMPLETE [None]
  - BUNDLE BRANCH BLOCK LEFT [None]
  - BUNDLE BRANCH BLOCK RIGHT [None]
  - CONDITION AGGRAVATED [None]
  - NODAL ARRHYTHMIA [None]
  - RENAL FAILURE ACUTE [None]
  - THERAPEUTIC AGENT TOXICITY [None]
